FAERS Safety Report 7261463-X (Version None)
Quarter: 2011Q1

REPORT INFORMATION
  Report Type: 
  Country: None (occurrence: None)
  Receive Date: 20110130
  Receipt Date: 20100920
  Transmission Date: 20110831
  Serious: Yes (Other)
  Sender: FDA-Public Use
  Company Number: US-ABBOTT-10P-163-0672343-00

PATIENT
  Sex: Female

DRUGS (8)
  1. ALBUTEROL [Concomitant]
     Indication: DYSPNOEA
  2. AVAPRO [Concomitant]
     Indication: HYPERTENSION
  3. FLUOXETINE [Concomitant]
     Indication: ANXIETY
  4. HUMIRA [Suspect]
     Indication: CROHN'S DISEASE
     Dates: start: 20040701
  5. ZYRTEC [Concomitant]
     Indication: HYPERSENSITIVITY
  6. OMEPRAZOLE [Concomitant]
  7. FLONASE [Concomitant]
     Indication: HYPERSENSITIVITY
     Route: 045
  8. ADVAIR [Concomitant]
     Indication: ASTHMA
     Dosage: 250/50
     Route: 055

REACTIONS (4)
  - SMALL INTESTINAL RESECTION [None]
  - INJECTION SITE VESICLES [None]
  - INJECTION SITE HAEMORRHAGE [None]
  - INJECTION SITE HAEMATOMA [None]
